FAERS Safety Report 8836715 (Version 1)
Quarter: 2012Q4

REPORT INFORMATION
  Report Type: Spontaneous
  Country: US (occurrence: None)
  Receive Date: 20121011
  Receipt Date: 20121011
  Transmission Date: 20130627
  Serious: Yes (Hospitalization)
  Sender: FDA-Public Use
  Company Number: None

PATIENT
  Sex: Male

DRUGS (1)
  1. XELODA [Suspect]
     Indication: CHEMOTHERAPY
     Dosage: 4 bid x 2 weeks
     Route: 048
     Dates: start: 20120817, end: 20121001

REACTIONS (2)
  - Hypersensitivity [None]
  - Chest discomfort [None]
